FAERS Safety Report 7691844-1 (Version None)
Quarter: 2011Q3

REPORT INFORMATION
  Report Type: 
  Country: None (occurrence: None)
  Receive Date: 20110818
  Receipt Date: 20110811
  Transmission Date: 20111222
  Serious: Yes (Life-Threatening)
  Sender: FDA-Public Use
  Company Number: DE-JNJFOC-20110506868

PATIENT
  Sex: Female
  Weight: 71 kg

DRUGS (5)
  1. TAPENTADOL [Suspect]
     Indication: BACK PAIN
     Route: 048
     Dates: start: 20101215, end: 20101216
  2. ETORICOXIB [Concomitant]
     Indication: BACK PAIN
     Route: 065
     Dates: start: 20101213
  3. OXYCODON [Concomitant]
     Indication: BACK PAIN
     Route: 065
     Dates: start: 20100801
  4. FLUNITRAZEPAM [Concomitant]
     Indication: SLEEP DISORDER THERAPY
     Route: 065
  5. PREGABALIN [Concomitant]
     Indication: GRAND MAL CONVULSION
     Route: 065

REACTIONS (1)
  - CONVULSION [None]
